FAERS Safety Report 8094576-3 (Version None)
Quarter: 2012Q1

REPORT INFORMATION
  Report Type: 
  Country: None (occurrence: None)
  Receive Date: 20120131
  Receipt Date: 20120119
  Transmission Date: 20120608
  Serious: Yes (Life-Threatening, Other)
  Sender: FDA-Public Use
  Company Number: PL-JNJFOC-20120109462

PATIENT
  Age: 13 Year
  Sex: Male
  Weight: 27.2 kg

DRUGS (6)
  1. PREDNISONE [Concomitant]
     Route: 065
  2. PENTASA [Concomitant]
     Route: 065
  3. SOLU-MEDROL [Concomitant]
     Indication: PREMEDICATION
     Route: 042
  4. REMICADE [Suspect]
     Dosage: 1.5 AMPOULE
     Route: 042
     Dates: start: 20120113, end: 20120113
  5. REMICADE [Suspect]
     Indication: CROHN'S DISEASE
     Dosage: 1.5 AMPOULE
     Route: 042
     Dates: start: 20111230
  6. AZATHIOPRINE [Concomitant]
     Route: 065

REACTIONS (2)
  - ANAPHYLACTIC REACTION [None]
  - INFUSION RELATED REACTION [None]
